FAERS Safety Report 23580487 (Version 3)
Quarter: 2025Q1

REPORT INFORMATION
  Report Type: Report from Study
  Country: DE (occurrence: DE)
  Receive Date: 20240229
  Receipt Date: 20250206
  Transmission Date: 20250408
  Serious: Yes (Other)
  Sender: NOVARTIS
  Company Number: DE-002147023-NVSC2024DE018122

PATIENT
  Sex: Female

DRUGS (6)
  1. BEOVU [Suspect]
     Active Substance: BROLUCIZUMAB-DBLL
     Indication: Neovascular age-related macular degeneration
     Dosage: 0.05 ML, QD (=6MG BROLUCIZUMAB)
     Route: 031
     Dates: start: 20230510, end: 20230510
  2. BEOVU [Suspect]
     Active Substance: BROLUCIZUMAB-DBLL
     Dosage: 0.05 ML, QD (=6MG BROLUCIZUMAB)
     Route: 031
     Dates: start: 20230612, end: 20230612
  3. BEOVU [Suspect]
     Active Substance: BROLUCIZUMAB-DBLL
     Dosage: 0.05 ML, QD (=6MG BROLUCIZUMAB)
     Route: 031
     Dates: start: 20230710, end: 20230710
  4. BEOVU [Suspect]
     Active Substance: BROLUCIZUMAB-DBLL
     Dosage: 0.05 ML, QD (=6MG BROLUCIZUMAB)
     Route: 031
     Dates: start: 20230904, end: 20230904
  5. BEOVU [Suspect]
     Active Substance: BROLUCIZUMAB-DBLL
     Dosage: 0.05 ML, QD (=6MG BROLUCIZUMAB)
     Route: 031
     Dates: start: 20231106, end: 20231106
  6. BEOVU [Suspect]
     Active Substance: BROLUCIZUMAB-DBLL
     Dosage: 0.05 ML, QD (=6MG BROLUCIZUMAB)
     Route: 031
     Dates: start: 20240108, end: 20240108

REACTIONS (2)
  - Retinal oedema [Not Recovered/Not Resolved]
  - Drug ineffective [Not Recovered/Not Resolved]

NARRATIVE: CASE EVENT DATE: 20240108
